FAERS Safety Report 6960729-8 (Version None)
Quarter: 2010Q3

REPORT INFORMATION
  Report Type: 
  Country: None (occurrence: None)
  Receive Date: 20100830
  Receipt Date: 20100816
  Transmission Date: 20110219
  Serious: Yes (Hospitalization)
  Sender: FDA-Public Use
  Company Number: A-NJ2010-38521

PATIENT
  Age: 73 Year
  Sex: Female

DRUGS (10)
  1. TRACLEER [Suspect]
     Indication: PULMONARY ARTERIAL HYPERTENSION
     Dosage: 125 MG, BID, ORAL, MG, BID, ORAL, 62.5 MG, BID, ORAL
     Route: 048
     Dates: end: 20100701
  2. TRACLEER [Suspect]
     Indication: PULMONARY ARTERIAL HYPERTENSION
     Dosage: 125 MG, BID, ORAL, MG, BID, ORAL, 62.5 MG, BID, ORAL
     Route: 048
     Dates: start: 20091012
  3. TRACLEER [Suspect]
     Indication: PULMONARY ARTERIAL HYPERTENSION
     Dosage: 125 MG, BID, ORAL, MG, BID, ORAL, 62.5 MG, BID, ORAL
     Route: 048
     Dates: start: 20100701
  4. LIPITOR [Concomitant]
  5. PLAVIX [Concomitant]
  6. METOPROLOL SUCCINATE [Concomitant]
  7. MULTIVITAMIN [Concomitant]
  8. CALCIUM D (ASCORBIC ACID, CALCIUM GLUCONATE, CALCIUM LACTATE, CALCIUM [Concomitant]
  9. SPIRIVA [Concomitant]
  10. DIGOXIN [Concomitant]

REACTIONS (3)
  - FALL [None]
  - HYPOTENSION [None]
  - OFF LABEL USE [None]
